FAERS Safety Report 16320728 (Version 5)
Quarter: 2020Q3

REPORT INFORMATION
  Report Type: Spontaneous
  Country: US (occurrence: US)
  Receive Date: 20190516
  Receipt Date: 20200804
  Transmission Date: 20201102
  Serious: No
  Sender: FDA-Public Use
  Company Number: US-PFIZER INC-2019208055

PATIENT
  Age: 83 Year
  Sex: Female
  Weight: 69.39 kg

DRUGS (2)
  1. XALKORI [Suspect]
     Active Substance: CRIZOTINIB
     Indication: NON-SMALL CELL LUNG CANCER METASTATIC
     Dosage: 250 MG, 2X/DAY
  2. XALKORI [Suspect]
     Active Substance: CRIZOTINIB
     Dosage: 250 MG, 2X/DAY

REACTIONS (6)
  - Memory impairment [Unknown]
  - Somnambulism [Unknown]
  - Middle insomnia [Unknown]
  - Somnolence [Unknown]
  - Sleep talking [Unknown]
  - Limb injury [Recovered/Resolved]
